FAERS Safety Report 9771045 (Version 3)
Quarter: 2014Q1

REPORT INFORMATION
  Report Type: Spontaneous
  Country: US (occurrence: US)
  Receive Date: 20131218
  Receipt Date: 20140225
  Transmission Date: 20141002
  Serious: Yes (Other)
  Sender: FDA-Public Use
  Company Number: US-TEVA-451307USA

PATIENT
  Age: 29 Year
  Sex: Female
  Weight: 57.66 kg

DRUGS (2)
  1. PARAGARD 380A [Suspect]
     Indication: CONTRACEPTION
     Route: 015
     Dates: start: 20131114, end: 20131212
  2. LAMICTAL [Concomitant]
     Indication: CONVULSION

REACTIONS (4)
  - Haemorrhage [Recovering/Resolving]
  - Device dislocation [Recovered/Resolved]
  - Pelvic pain [Recovering/Resolving]
  - Device expulsion [Recovered/Resolved]
